FAERS Safety Report 20584555 (Version 2)
Quarter: 2022Q1

REPORT INFORMATION
  Report Type: Report from Study
  Country: JP (occurrence: JP)
  Receive Date: 20220311
  Receipt Date: 20220315
  Transmission Date: 20220423
  Serious: Yes (Life-Threatening, Hospitalization, Other)
  Sender: FDA-Public Use
  Company Number: JP-BRISTOL-MYERS SQUIBB COMPANY-BMS-2022-033910

PATIENT
  Age: 67 Year
  Sex: Male
  Weight: 57.1 kg

DRUGS (4)
  1. IPILIMUMAB [Suspect]
     Active Substance: IPILIMUMAB
     Indication: Non-small cell lung cancer
     Dosage: UNK, ONE TIME DOSE
     Route: 041
     Dates: start: 20211026, end: 20211026
  2. NIVOLUMAB [Suspect]
     Active Substance: NIVOLUMAB
     Indication: Non-small cell lung cancer
     Dosage: UNK UNK, ONE TIME DOSE
     Route: 041
     Dates: start: 20211026, end: 20211026
  3. CARBOPLATIN [Suspect]
     Active Substance: CARBOPLATIN
     Indication: Non-small cell lung cancer
     Dosage: UNK UNK, ONE TIME DOSE
     Route: 065
     Dates: start: 20211026, end: 20211026
  4. PACLITAXEL [Suspect]
     Active Substance: PACLITAXEL
     Indication: Non-small cell lung cancer
     Dosage: UNK UNK, ONE TIME DOSE
     Route: 065
     Dates: start: 20211026, end: 20211026

REACTIONS (5)
  - Subarachnoid haemorrhage [Recovering/Resolving]
  - Immune thrombocytopenia [Recovered/Resolved]
  - Large intestinal ulcer haemorrhage [Recovering/Resolving]
  - Malignant neoplasm progression [Unknown]
  - Fall [Unknown]

NARRATIVE: CASE EVENT DATE: 20211103
